FAERS Safety Report 23527047 (Version 1)
Quarter: 2024Q1

REPORT INFORMATION
  Report Type: Spontaneous
  Country: US (occurrence: None)
  Receive Date: 20240215
  Receipt Date: 20240215
  Transmission Date: 20240410
  Serious: Yes (Death)
  Sender: FDA-Public Use
  Company Number: None

PATIENT
  Sex: Female

DRUGS (22)
  1. LETAIRIS [Suspect]
     Active Substance: AMBRISENTAN
     Indication: Pulmonary arterial hypertension
     Dosage: FREQUENCY : DAILY;?
     Route: 048
  2. METOPROLOL TARTRATE [Concomitant]
     Active Substance: METOPROLOL TARTRATE
  3. LEVOTHYROXINE SODIUM [Concomitant]
     Active Substance: LEVOTHYROXINE SODIUM
  4. POTASSIUM CHLORIDE [Concomitant]
     Active Substance: POTASSIUM CHLORIDE
  5. RESTASIS [Concomitant]
     Active Substance: CYCLOSPORINE
  6. FLUTICASONE PROPIONATE [Concomitant]
     Active Substance: FLUTICASONE PROPIONATE
  7. FOLIC ACID [Concomitant]
     Active Substance: FOLIC ACID
  8. RHINOCORT ALLERGY [Concomitant]
     Active Substance: BUDESONIDE
  9. PSYLLIUM FIBER| LOSARTAN POTASSIUM| VITAMIN D [Concomitant]
  10. SIMVASTATIN	|ASPIRIN EC [Concomitant]
  11. SINGULAIR | 	  ISOSORBIDE MONONITRATE ER [Concomitant]
  12. VITAMINS + MINERALS [Concomitant]
  13. TROSPIUM CHLORIDE [Concomitant]
     Active Substance: TROSPIUM CHLORIDE
  14. MUCINEX [Concomitant]
     Active Substance: GUAIFENESIN
  15. CALCIUM\VITAMIN D [Concomitant]
     Active Substance: CALCIUM\VITAMIN D
  16. SYSTANE HYDRATION PF [Concomitant]
  17. TYLENOL [Concomitant]
     Active Substance: ACETAMINOPHEN
  18. LYSINE [Concomitant]
     Active Substance: LYSINE
  19. CEPHALEXIN [Concomitant]
     Active Substance: CEPHALEXIN
  20. CETIRIZINE HYDROCHLORIDE [Concomitant]
     Active Substance: CETIRIZINE HYDROCHLORIDE
  21. RITUXAN [Concomitant]
     Active Substance: RITUXIMAB
  22. FUROSEMIDE [Concomitant]
     Active Substance: FUROSEMIDE

REACTIONS (1)
  - Death [None]
